FAERS Safety Report 25536732 (Version 1)
Quarter: 2025Q3

REPORT INFORMATION
  Report Type: Spontaneous
  Country: US (occurrence: US)
  Receive Date: 20250710
  Receipt Date: 20250710
  Transmission Date: 20251020
  Serious: Yes (Death, Hospitalization, Other)
  Sender: NOVITIUM PHARMA
  Company Number: US-NOVITIUMPHARMA-2025USNVP01570

PATIENT
  Age: 15 Year
  Sex: Male

DRUGS (6)
  1. PREDNISONE [Suspect]
     Active Substance: PREDNISONE
     Indication: Neuromyelitis optica spectrum disorder
     Route: 048
     Dates: start: 20220809
  2. PREDNISONE [Suspect]
     Active Substance: PREDNISONE
     Route: 048
  3. RITUXIMAB [Concomitant]
     Active Substance: RITUXIMAB
     Indication: Neuromyelitis optica spectrum disorder
  4. TOCILIZUMAB [Concomitant]
     Active Substance: TOCILIZUMAB
     Indication: Neuromyelitis optica spectrum disorder
     Route: 042
     Dates: start: 20221228
  5. TOCILIZUMAB [Concomitant]
     Active Substance: TOCILIZUMAB
  6. INSULIN NOS [Concomitant]
     Active Substance: INSULIN NOS
     Indication: Diabetic ketoacidosis

REACTIONS (2)
  - Duodenal perforation [Fatal]
  - Disseminated aspergillosis [Fatal]
